FAERS Safety Report 10083041 (Version 2)
Quarter: 2015Q2

REPORT INFORMATION
  Report Type: Report from Study
  Country: US (occurrence: US)
  Receive Date: 20140417
  Receipt Date: 20150527
  Transmission Date: 20150821
  Serious: Yes (Hospitalization)
  Sender: FDA-Public Use
  Company Number: US-BIOGENIDEC-2014BI035544

PATIENT
  Age: 50 Year
  Sex: Female

DRUGS (1)
  1. TYSABRI [Suspect]
     Active Substance: NATALIZUMAB
     Indication: MULTIPLE SCLEROSIS
     Route: 042
     Dates: start: 20061208

REACTIONS (5)
  - Trigeminal neuralgia [Unknown]
  - Multiple sclerosis relapse [Recovered/Resolved]
  - Poor venous access [Recovered/Resolved]
  - Anxiety [Not Recovered/Not Resolved]
  - Screaming [Unknown]

NARRATIVE: CASE EVENT DATE: 20120101
